FAERS Safety Report 4393771-4 (Version None)
Quarter: 2004Q3

REPORT INFORMATION
  Report Type: 
  Country: None (occurrence: None)
  Receive Date: 20040706
  Receipt Date: 20040618
  Transmission Date: 20050211
  Serious: Yes (Hospitalization)
  Sender: FDA-Public Use
  Company Number: D01200402240

PATIENT
  Age: 69 Year
  Sex: Female

DRUGS (3)
  1. FONDAPARINUX - SOLUTION - UNKNOWN [Suspect]
     Indication: MYOCARDIAL INFARCTION
     Dosage: 2.5 MG QD SUBCUTANEOUS
     Route: 058
     Dates: start: 20040324, end: 20040331
  2. ANOPYRIN (ACETYLSALICYLIC ACID) [Concomitant]
  3. PLAVIX [Concomitant]

REACTIONS (2)
  - CATHETER RELATED COMPLICATION [None]
  - MYOCARDIAL INFARCTION [None]
